FAERS Safety Report 20876873 (Version 1)
Quarter: 2022Q2

REPORT INFORMATION
  Report Type: Report from Study
  Country: EG (occurrence: EG)
  Receive Date: 20220526
  Receipt Date: 20220526
  Transmission Date: 20220721
  Serious: Yes (Other)
  Sender: FDA-Public Use
  Company Number: EG-BAYER-2022A070443

PATIENT
  Sex: Female

DRUGS (2)
  1. EYLEA [Suspect]
     Active Substance: AFLIBERCEPT
     Indication: Retinal haemorrhage
     Dosage: UNK, SOLUTION FOR INJECTION
     Route: 031
     Dates: start: 20210517
  2. EYLEA [Suspect]
     Active Substance: AFLIBERCEPT
     Indication: Macular oedema
     Dosage: UNK, FOURTH EYLEA INJECTION ON THE RIGHT EYE, SOL FOR INJ
     Dates: start: 20211220, end: 20211220

REACTIONS (3)
  - Ulcerative keratitis [Recovered/Resolved]
  - Optic atrophy [Unknown]
  - Visual acuity reduced [Not Recovered/Not Resolved]

NARRATIVE: CASE EVENT DATE: 20211201
